FAERS Safety Report 10235193 (Version 1)
Quarter: 2014Q2

REPORT INFORMATION
  Report Type: Spontaneous
  Country: IT (occurrence: IT)
  Receive Date: 20140613
  Receipt Date: 20140613
  Transmission Date: 20141212
  Serious: Yes (Hospitalization)
  Sender: FDA-Public Use
  Company Number: IT-TEVA-486783ISR

PATIENT
  Age: 71 Year
  Sex: Female

DRUGS (4)
  1. KETOPROFEN [Suspect]
     Indication: CERVICOBRACHIAL SYNDROME
     Dosage: 1 DF TOTAL
     Route: 048
     Dates: start: 20131217, end: 20131217
  2. PARACETAMOL [Suspect]
     Indication: CERVICOBRACHIAL SYNDROME
     Dosage: 1 DF TOTAL
     Route: 048
     Dates: start: 20131217, end: 20131217
  3. CONTRAMAL 100 MG/ML GOCCE ORALI SOLUZIONE - GRUNENTHAL ITALIA S.R.L. [Suspect]
     Indication: CERVICOBRACHIAL SYNDROME
     Dosage: 20 GTT TOTAL
     Route: 048
     Dates: start: 20131217, end: 20131217
  4. EUTIROX 100 MICROGRAMMI COMPRESSE [Concomitant]
     Indication: PRODUCT USED FOR UNKNOWN INDICATION

REACTIONS (4)
  - Abdominal pain upper [Recovered/Resolved]
  - Nausea [Recovered/Resolved]
  - Presyncope [Recovered/Resolved]
  - Vomiting [Recovered/Resolved]
